FAERS Safety Report 5040701-8 (Version None)
Quarter: 2006Q2

REPORT INFORMATION
  Report Type: 
  Country: None (occurrence: None)
  Receive Date: 20060630
  Receipt Date: 20060630
  Transmission Date: 20061013
  Serious: Yes (Hospitalization)
  Sender: FDA-Public Use
  Company Number: None

PATIENT
  Sex: Female
  Weight: 52.6173 kg

DRUGS (2)
  1. CARBOPLATIN [Suspect]
     Indication: OVARIAN CANCER
     Dosage: AUC 6   IV   D1 Q 21 DAYS
     Route: 042
     Dates: start: 20060614
  2. TAXOL [Suspect]
     Indication: OVARIAN CANCER
     Dosage: 175MG/M2  IV  D1   Q 21 DAYS
     Route: 042
     Dates: start: 20060614

REACTIONS (4)
  - NAUSEA [None]
  - OESOPHAGITIS [None]
  - URINARY TRACT INFECTION [None]
  - VOMITING [None]
